FAERS Safety Report 6132475-4 (Version None)
Quarter: 2009Q1

REPORT INFORMATION
  Report Type: 
  Country: None (occurrence: None)
  Receive Date: 20090325
  Receipt Date: 20090316
  Transmission Date: 20090719
  Serious: Yes (Hospitalization)
  Sender: FDA-Public Use
  Company Number: JP-B.I. PHARMACEUTICALS,INC./RIDGEFIELD-2009-BP-03131NB

PATIENT
  Age: 75 Year
  Sex: Female

DRUGS (5)
  1. MICARDIS [Suspect]
     Indication: HYPERTENSION
     Dosage: 80MG
     Route: 048
     Dates: start: 20090130, end: 20090311
  2. ACTOS [Concomitant]
     Dosage: 15MG
     Route: 048
  3. AMLODIN [Concomitant]
     Dosage: 10MG
     Route: 048
  4. LASIX [Concomitant]
     Dosage: 40MG
     Route: 048
  5. FERRUM [Concomitant]
     Dosage: 305MG
     Route: 048

REACTIONS (1)
  - HYPOGLYCAEMIA [None]
